FAERS Safety Report 13599945 (Version 1)
Quarter: 2017Q2

REPORT INFORMATION
  Report Type: Report from Study
  Country: US (occurrence: US)
  Receive Date: 20170601
  Receipt Date: 20170601
  Transmission Date: 20170830
  Serious: Yes (Disabling, Other)
  Sender: FDA-Public Use
  Company Number: US-AMGEN-USASL2017082587

PATIENT
  Age: 45 Year
  Sex: Female

DRUGS (1)
  1. ENBREL [Suspect]
     Active Substance: ETANERCEPT
     Indication: PRODUCT USED FOR UNKNOWN INDICATION
     Dosage: 50 MG, QWK
     Route: 065

REACTIONS (7)
  - Vomiting [Unknown]
  - Disability [Not Recovered/Not Resolved]
  - Sensation of foreign body [Unknown]
  - Nausea [Unknown]
  - Rhinorrhoea [Unknown]
  - Vision blurred [Unknown]
  - Hot flush [Unknown]

NARRATIVE: CASE EVENT DATE: 201705
